FAERS Safety Report 7770544-3 (Version None)
Quarter: 2011Q3

REPORT INFORMATION
  Report Type: 
  Country: None (occurrence: None)
  Receive Date: 20110922
  Receipt Date: 20110526
  Transmission Date: 20111222
  Serious: No
  Sender: FDA-Public Use
  Company Number: US-ASTRAZENECA-2011SE32324

PATIENT
  Sex: Female

DRUGS (2)
  1. PROZAC [Concomitant]
  2. SEROQUEL [Suspect]
     Route: 048

REACTIONS (4)
  - INSOMNIA [None]
  - RASH [None]
  - MUSCLE TWITCHING [None]
  - PAIN IN EXTREMITY [None]
